FAERS Safety Report 8101200-X (Version None)
Quarter: 2012Q1

REPORT INFORMATION
  Report Type: 
  Country: None (occurrence: None)
  Receive Date: 20120129
  Receipt Date: 20111012
  Transmission Date: 20120608
  Serious: No
  Sender: FDA-Public Use
  Company Number: US-ABBOTT-11P-163-0863789-00

PATIENT
  Sex: Female

DRUGS (1)
  1. HUMIRA [Suspect]
     Indication: CROHN'S DISEASE
     Dosage: UNDER THE SKIN, 1 IN 2 WEEKS
     Dates: start: 20110901

REACTIONS (3)
  - LETHARGY [None]
  - GASTROINTESTINAL PAIN [None]
  - DECREASED APPETITE [None]
